FAERS Safety Report 24545245 (Version 2)
Quarter: 2024Q4

REPORT INFORMATION
  Report Type: Spontaneous
  Country: RU (occurrence: RU)
  Receive Date: 20241024
  Receipt Date: 20241111
  Transmission Date: 20250114
  Serious: Yes (Other)
  Sender: R-PHARM US LLC
  Company Number: RU-R-PHARM US LLC-2024RPM00005

PATIENT
  Age: 7 Decade

DRUGS (4)
  1. IXABEPILONE [Suspect]
     Active Substance: IXABEPILONE
     Indication: Invasive ductal breast carcinoma
     Dosage: 40 MG/M2, 21 DAY CYCLE
     Dates: start: 20230127, end: 20231220
  2. TRASTUZUMAB [Suspect]
     Active Substance: TRASTUZUMAB
     Indication: Invasive ductal breast carcinoma
     Dosage: UNK
     Dates: start: 202108
  3. TRASTUZUMAB [Suspect]
     Active Substance: TRASTUZUMAB
     Dosage: UNK
     Dates: start: 202303, end: 20230401
  4. TRASTUZUMAB [Suspect]
     Active Substance: TRASTUZUMAB
     Dosage: UNK
     Dates: start: 202308

REACTIONS (1)
  - Invasive ductal breast carcinoma [Recovering/Resolving]

NARRATIVE: CASE EVENT DATE: 20231208
